FAERS Safety Report 6600437-6 (Version None)
Quarter: 2010Q1

REPORT INFORMATION
  Report Type: 
  Country: None (occurrence: None)
  Receive Date: 20100223
  Receipt Date: 20100223
  Transmission Date: 20100710
  Serious: Yes (Death)
  Sender: FDA-Public Use
  Company Number: None

PATIENT
  Age: 91 Year
  Sex: Male
  Weight: 55.5 kg

DRUGS (4)
  1. VIDAZA [Suspect]
     Indication: MYELODYSPLASTIC SYNDROME
     Dosage: 60 MG DAILY X5 SC
     Route: 058
     Dates: start: 20100118
  2. ARANESP [Concomitant]
  3. NEUPOGENA [Concomitant]
  4. MULTIPLE BLOOD/PLATELETS TRANSFUSIONS [Concomitant]

REACTIONS (3)
  - ANAEMIA [None]
  - ASTHENIA [None]
  - HYPOTENSION [None]
